FAERS Safety Report 4521906-9 (Version None)
Quarter: 2004Q4

REPORT INFORMATION
  Report Type: 
  Country: None (occurrence: None)
  Receive Date: 20041206
  Receipt Date: 20041110
  Transmission Date: 20050328
  Serious: Yes (Other)
  Sender: FDA-Public Use
  Company Number: 2004091437

PATIENT
  Age: 83 Year
  Sex: Female
  Weight: 53.5244 kg

DRUGS (5)
  1. BEXTRA [Suspect]
     Indication: OSTEOPOROSIS
     Dosage: 20 MG (20 MG, 1 IN 1 D), ORAL
     Route: 048
     Dates: start: 20021202, end: 20021201
  2. LIPITOR [Suspect]
     Indication: BLOOD CHOLESTEROL INCREASED
     Dosage: 10 MG (10 MG, 1 IN 1 D), ORAL
     Route: 048
  3. ALL OTHER THERAPEUTIC PRODUCTS (ALL OTHER THERAPEUTIC PRODUCTS) [Suspect]
     Indication: ORAL MUCOSAL BLISTERING
     Dates: start: 20021201
  4. DRUG, UNSPECIFIED (DRUG, UNSPECIFIED) [Suspect]
     Indication: HYPERTENSION
     Dates: start: 20040101, end: 20040101
  5. METOPROLOL TARTRATE [Suspect]
     Indication: HYPERTENSION
     Dates: start: 20040101, end: 20040101

REACTIONS (9)
  - CYSTITIS [None]
  - DRUG HYPERSENSITIVITY [None]
  - HYPERTENSION [None]
  - HYPOAESTHESIA ORAL [None]
  - MARKEDLY REDUCED DIETARY INTAKE [None]
  - OSTEOPOROSIS [None]
  - STEVENS-JOHNSON SYNDROME [None]
  - VULVOVAGINAL DISCOMFORT [None]
  - WEIGHT DECREASED [None]
